FAERS Safety Report 9112876 (Version 1)
Quarter: 2013Q1

REPORT INFORMATION
  Report Type: Spontaneous
  Country: FR (occurrence: FR)
  Receive Date: 20130211
  Receipt Date: 20130211
  Transmission Date: 20140127
  Serious: Yes (Other)
  Sender: FDA-Public Use
  Company Number: FR-PFIZER INC-2013048084

PATIENT
  Age: 39 Year
  Sex: Female

DRUGS (1)
  1. VFEND [Suspect]
     Indication: FUSARIUM INFECTION
     Dosage: UNK
     Route: 048
     Dates: start: 201209, end: 201210

REACTIONS (1)
  - Hepatic enzyme increased [Recovered/Resolved]
